FAERS Safety Report 13593317 (Version 2)
Quarter: 2017Q2

REPORT INFORMATION
  Report Type: Report from Study
  Country: CO (occurrence: CO)
  Receive Date: 20170530
  Receipt Date: 20170609
  Transmission Date: 20170830
  Serious: Yes (Other)
  Sender: FDA-Public Use
  Company Number: CO-AMGEN-COLSL2017079922

PATIENT
  Age: 83 Year
  Sex: Male

DRUGS (1)
  1. MIMPARA [Suspect]
     Active Substance: CINACALCET HYDROCHLORIDE
     Indication: HYPERPARATHYROIDISM SECONDARY
     Dosage: 30 MG, QD (BEFORE LUNCH)
     Route: 048
     Dates: start: 20170120

REACTIONS (3)
  - Off label use [Not Recovered/Not Resolved]
  - Neoplasm malignant [Unknown]
  - Nasal operation [Not Recovered/Not Resolved]

NARRATIVE: CASE EVENT DATE: 2017
